FAERS Safety Report 21932532 (Version 1)
Quarter: 2023Q1

REPORT INFORMATION
  Report Type: Spontaneous
  Country: US (occurrence: None)
  Receive Date: 20230131
  Receipt Date: 20230131
  Transmission Date: 20230417
  Serious: No
  Sender: FDA-Public Use
  Company Number: None

PATIENT

DRUGS (7)
  1. PAXLOVID [Suspect]
     Active Substance: NIRMATRELVIR\RITONAVIR
  2. RANEXA [Suspect]
     Active Substance: RANOLAZINE
  3. FLECAINIDE ACETATE [Suspect]
     Active Substance: FLECAINIDE ACETATE
  4. PLAVIX [Suspect]
     Active Substance: CLOPIDOGREL BISULFATE
  5. TRAZODONE HCL [Suspect]
     Active Substance: TRAZODONE HYDROCHLORIDE
  6. NORVASC [Suspect]
     Active Substance: AMLODIPINE BESYLATE
  7. ELIQUIS [Suspect]
     Active Substance: APIXABAN

REACTIONS (10)
  - Drug interaction [None]
  - Product dispensing error [None]
  - Contraindicated product prescribed [None]
  - Therapy change [None]
  - Eyelid ptosis [None]
  - Muscular weakness [None]
  - Fall [None]
  - Confusional state [None]
  - Tremor [None]
  - Coordination abnormal [None]
